FAERS Safety Report 13836001 (Version 2)
Quarter: 2017Q3

REPORT INFORMATION
  Report Type: Spontaneous
  Country: CH (occurrence: CH)
  Receive Date: 20170804
  Receipt Date: 20170814
  Transmission Date: 20171127
  Serious: Yes (Hospitalization, Other)
  Sender: FDA-Public Use
  Company Number: CH-SA-2017SA139069

PATIENT
  Age: 93 Year
  Sex: Male

DRUGS (18)
  1. CALCIPARINE [Interacting]
     Active Substance: HEPARIN CALCIUM
     Route: 058
     Dates: start: 20170422, end: 20170422
  2. AUGMENTIN [Suspect]
     Active Substance: AMOXICILLIN\CLAVULANATE POTASSIUM
     Route: 048
     Dates: start: 20170227, end: 20170303
  3. ISOKET [Concomitant]
     Active Substance: ISOSORBIDE DINITRATE
     Route: 065
     Dates: start: 20170203
  4. LYRICA [Suspect]
     Active Substance: PREGABALIN
     Route: 048
     Dates: start: 20170410, end: 20170411
  5. LAMICTAL [Suspect]
     Active Substance: LAMOTRIGINE
     Route: 048
     Dates: start: 20170330, end: 20170410
  6. DAFALGAN [Concomitant]
     Active Substance: ACETAMINOPHEN
  7. TOREM [Concomitant]
     Active Substance: TORSEMIDE
     Route: 065
     Dates: start: 201612
  8. COLECALCIFEROL [Concomitant]
     Active Substance: CHOLECALCIFEROL
     Route: 065
     Dates: start: 20170113
  9. PLAVIX [Interacting]
     Active Substance: CLOPIDOGREL BISULFATE
     Route: 048
     Dates: start: 20161223
  10. ASPIRIN CARDIO [Interacting]
     Active Substance: ASPIRIN
     Route: 048
     Dates: start: 20161223
  11. BELOC ZOK [Suspect]
     Active Substance: METOPROLOL SUCCINATE
     Route: 048
     Dates: start: 20170221
  12. GLUCOPHAGE [Suspect]
     Active Substance: METFORMIN HYDROCHLORIDE
     Route: 048
  13. BELOC ZOK [Suspect]
     Active Substance: METOPROLOL SUCCINATE
     Route: 048
     Dates: start: 20161230, end: 20170103
  14. ENALAPRIL [Concomitant]
     Active Substance: ENALAPRIL
     Route: 065
     Dates: end: 20170310
  15. CLEXANE [Suspect]
     Active Substance: ENOXAPARIN SODIUM
     Route: 058
     Dates: start: 20170109, end: 20170206
  16. CORDARONE [Suspect]
     Active Substance: AMIODARONE HYDROCHLORIDE
     Route: 048
     Dates: start: 20170228
  17. LAMICTAL [Suspect]
     Active Substance: LAMOTRIGINE
     Route: 048
     Dates: start: 20170315, end: 20170329
  18. SORTIS [Concomitant]
     Active Substance: ATORVASTATIN

REACTIONS (12)
  - Subarachnoid haemorrhage [Unknown]
  - Rash [Recovered/Resolved]
  - Craniocerebral injury [Unknown]
  - Hypoglycaemia [Recovered/Resolved]
  - Seizure [Unknown]
  - Haematuria [Recovered/Resolved]
  - Petechiae [Unknown]
  - Bradycardia [Recovered/Resolved]
  - Drug interaction [Unknown]
  - Traumatic haematoma [Unknown]
  - Hypotension [Recovered/Resolved]
  - Fall [Recovered/Resolved]

NARRATIVE: CASE EVENT DATE: 20170104
